FAERS Safety Report 24642689 (Version 1)
Quarter: 2024Q4

REPORT INFORMATION
  Report Type: Spontaneous
  Country: US (occurrence: None)
  Receive Date: 20241120
  Receipt Date: 20241120
  Transmission Date: 20250115
  Serious: Yes (Hospitalization)
  Sender: Public
  Company Number: None

PATIENT
  Sex: Female

DRUGS (5)
  1. WINREVAIR [Suspect]
     Active Substance: SOTATERCEPT-CSRK
     Indication: Pulmonary arterial hypertension
     Dosage: 0.7 ML  EVERY 3 WEEKS SC?
     Route: 058
     Dates: start: 202407
  2. PREDNISONE [Suspect]
     Active Substance: PREDNISONE
  3. UPTRAVI [Concomitant]
     Active Substance: SELEXIPAG
  4. AMBRISENTAN [Concomitant]
     Active Substance: AMBRISENTAN
  5. SILDENAFIL CITRATE [Concomitant]

REACTIONS (6)
  - Dyspnoea exertional [None]
  - Oxygen consumption increased [None]
  - Swelling [None]
  - Pneumonia [None]
  - Decreased activity [None]
  - General physical health deterioration [None]
